FAERS Safety Report 4630433-X (Version None)
Quarter: 2005Q2

REPORT INFORMATION
  Report Type: 
  Country: None (occurrence: None)
  Receive Date: 20050408
  Receipt Date: 20050326
  Transmission Date: 20051028
  Serious: Yes (Death, Hospitalization)
  Sender: FDA-Public Use
  Company Number: CZ-JNJFOC-20050307058

PATIENT
  Sex: Male

DRUGS (2)
  1. INFLIXIMAB [Suspect]
     Indication: RHEUMATOID ARTHRITIS
     Route: 042
  2. MEDROL [Concomitant]

REACTIONS (4)
  - BRONCHOPNEUMONIA [None]
  - CONFUSIONAL STATE [None]
  - GLIOMA [None]
  - HYPERTENSION [None]
